FAERS Safety Report 8351157-1 (Version None)
Quarter: 2012Q2

REPORT INFORMATION
  Report Type: 
  Country: None (occurrence: None)
  Receive Date: 20120510
  Receipt Date: 20120507
  Transmission Date: 20120825
  Serious: No
  Sender: FDA-Public Use
  Company Number: US-PFIZER INC-2012113109

PATIENT
  Sex: Female

DRUGS (2)
  1. PRISTIQ [Suspect]
     Dosage: 100 MG, UNK
  2. PRISTIQ [Suspect]
     Dosage: 50 MG, UNK

REACTIONS (5)
  - MEMORY IMPAIRMENT [None]
  - DEPRESSION [None]
  - CONFUSIONAL STATE [None]
  - DRUG DISPENSING ERROR [None]
  - MALAISE [None]
